FAERS Safety Report 15641044 (Version 1)
Quarter: 2018Q4

REPORT INFORMATION
  Report Type: Other
  Country: US (occurrence: US)
  Receive Date: 20181120
  Receipt Date: 20181120
  Transmission Date: 20190205
  Serious: No
  Sender: FDA-Public Use
  Company Number: US-LEADIANT BIOSCIENCES INC-2018STPI000261

PATIENT
  Sex: Male

DRUGS (7)
  1. MAG OXIDE [Concomitant]
     Active Substance: MAGNESIUM OXIDE
  2. TAMSULOSIN [Concomitant]
     Active Substance: TAMSULOSIN
  3. VITAMIN D                          /00107901/ [Concomitant]
     Active Substance: ERGOCALCIFEROL
  4. FISH OIL [Concomitant]
     Active Substance: FISH OIL
  5. VITAMIN B12 [Concomitant]
     Active Substance: CYANOCOBALAMIN
  6. ASPIRIN                            /00002701/ [Concomitant]
     Active Substance: ASPIRIN
  7. CYSTARAN [Suspect]
     Active Substance: CYSTEAMINE HYDROCHLORIDE
     Indication: CYSTINOSIS
     Dosage: 1 GTT, 6 TIMES DAILY IN BOTH EYES
     Route: 047
     Dates: start: 20160329

REACTIONS (1)
  - Eye irritation [Not Recovered/Not Resolved]
